FAERS Safety Report 7930664 (Version 1)
Quarter: 2012Q4

REPORT INFORMATION
  Report Type: Report from Study
  Country: DE (occurrence: DE)
  Receive Date: 20120829
  Receipt Date: 20120829
  Transmission Date: 20130627
  Serious: Yes (Hospitalization, Other)
  Sender: FDA-Public Use
  Company Number: DE-ASTRAZENECA-2010SE47958

PATIENT
  Age: 66 Year
  Sex: Female
  Weight: 92 kg

DRUGS (1)
  1. ARIMIDEX [Suspect]
     Indication: BREAST CANCER
     Route: 048
     Dates: start: 20100308

REACTIONS (4)
  - Hip arthroplasty [Recovered/Resolved]
  - Procedural complication [Recovered/Resolved]
  - Peripheral sensory neuropathy [Recovered/Resolved]
  - Arthralgia [Recovered/Resolved]
